FAERS Safety Report 25231621 (Version 1)
Quarter: 2025Q2

REPORT INFORMATION
  Report Type: Spontaneous
  Country: US (occurrence: None)
  Receive Date: 20250421
  Receipt Date: 20250421
  Transmission Date: 20250716
  Serious: Yes (unspecified)
  Sender: FDA-CTU
  Company Number: None

PATIENT
  Age: 40 Year
  Sex: Female
  Weight: 105 kg

DRUGS (2)
  1. MIRCERA [Suspect]
     Active Substance: METHOXY POLYETHYLENE GLYCOL-EPOETIN BETA
     Indication: End stage renal disease
     Dosage: 30 UGM EVERY 4 WEEKS INTRAVENOUS?
     Route: 042
     Dates: start: 20250314, end: 20250314
  2. MIRCERA [Suspect]
     Active Substance: METHOXY POLYETHYLENE GLYCOL-EPOETIN BETA
     Indication: Anaemia

REACTIONS (7)
  - Nausea [None]
  - Vomiting [None]
  - Pruritus [None]
  - Feeling hot [None]
  - Flushing [None]
  - Infusion related reaction [None]
  - Dialysis [None]

NARRATIVE: CASE EVENT DATE: 20250314
